FAERS Safety Report 7366286-9 (Version None)
Quarter: 2011Q1

REPORT INFORMATION
  Report Type: 
  Country: None (occurrence: None)
  Receive Date: 20110322
  Receipt Date: 20110308
  Transmission Date: 20110831
  Serious: Yes (Disabling, Other)
  Sender: FDA-Public Use
  Company Number: US-CELGENEUS-163-21880-10120669

PATIENT
  Sex: Female

DRUGS (3)
  1. REVLIMID [Suspect]
     Dosage: 15 MILLIGRAM
     Route: 048
     Dates: start: 20091201
  2. REVLIMID [Suspect]
     Indication: MYELOFIBROSIS
     Dosage: 15 MILLIGRAM
     Route: 048
     Dates: start: 20080501
  3. REVLIMID [Suspect]
     Dosage: 10 MILLIGRAM
     Route: 048
     Dates: start: 20090801

REACTIONS (3)
  - NO THERAPEUTIC RESPONSE [None]
  - HYPOAESTHESIA [None]
  - ANAEMIA [None]
